FAERS Safety Report 7647574-5 (Version None)
Quarter: 2011Q3

REPORT INFORMATION
  Report Type: 
  Country: None (occurrence: None)
  Receive Date: 20110801
  Receipt Date: 20110722
  Transmission Date: 20111222
  Serious: Yes (Death)
  Sender: FDA-Public Use
  Company Number: JP-ASTRAZENECA-2011SE44593

PATIENT
  Age: 84 Year
  Sex: Male
  Weight: 78 kg

DRUGS (3)
  1. NEPRESOL [Concomitant]
     Indication: ESSENTIAL HYPERTENSION
     Route: 048
     Dates: start: 20100701
  2. DILTIAZEM [Concomitant]
     Indication: ESSENTIAL HYPERTENSION
     Route: 048
     Dates: start: 20100501
  3. CANDESARTAN CILEXETIL AND HYDROCHLOROTHIAZIDE [Suspect]
     Indication: ESSENTIAL HYPERTENSION
     Dosage: 32/25 MG DAILY
     Route: 048
     Dates: start: 20101028

REACTIONS (1)
  - DEATH [None]
